FAERS Safety Report 17437637 (Version 6)
Quarter: 2020Q2

REPORT INFORMATION
  Report Type: Report from Study
  Country: US (occurrence: US)
  Receive Date: 20200219
  Receipt Date: 20200616
  Transmission Date: 20200713
  Serious: No
  Sender: FDA-Public Use
  Company Number: NVSC2020US046212

PATIENT
  Age: 89 Year
  Sex: Female

DRUGS (3)
  1. ENTRESTO [Suspect]
     Active Substance: SACUBITRIL\VALSARTAN
     Indication: PRODUCT USED FOR UNKNOWN INDICATION
     Dosage: 1 DF, BID
     Route: 048
     Dates: start: 201912
  2. CRESTOR [Concomitant]
     Active Substance: ROSUVASTATIN CALCIUM
     Indication: BLOOD CHOLESTEROL INCREASED
     Dosage: UNK
     Route: 065
     Dates: end: 202001
  3. MIRTAZAPIN [Concomitant]
     Active Substance: MIRTAZAPINE
     Indication: PRODUCT USED FOR UNKNOWN INDICATION
     Dosage: UNK
     Route: 065

REACTIONS (18)
  - Malaise [Recovering/Resolving]
  - Therapeutic response unexpected [Not Recovered/Not Resolved]
  - Swelling [Unknown]
  - Cough [Not Recovered/Not Resolved]
  - Weight increased [Recovering/Resolving]
  - Sensitivity to weather change [Unknown]
  - Mobility decreased [Unknown]
  - Rhinorrhoea [Recovering/Resolving]
  - Arthralgia [Unknown]
  - Sleep disorder [Not Recovered/Not Resolved]
  - Asthenia [Recovering/Resolving]
  - Sleep disorder [Recovered/Resolved]
  - Seasonal allergy [Unknown]
  - Fatigue [Recovering/Resolving]
  - Drug ineffective [Not Recovered/Not Resolved]
  - Lethargy [Recovered/Resolved]
  - Arthritis [Recovering/Resolving]
  - Lacrimation increased [Not Recovered/Not Resolved]

NARRATIVE: CASE EVENT DATE: 202001
